FAERS Safety Report 7542298-7 (Version None)
Quarter: 2011Q2

REPORT INFORMATION
  Report Type: 
  Country: None (occurrence: None)
  Receive Date: 20110606
  Receipt Date: 20110520
  Transmission Date: 20111010
  Serious: Yes (Hospitalization, Other)
  Sender: FDA-Public Use
  Company Number: AUR-APL-2011-02065

PATIENT
  Age: 84 Year
  Sex: Male

DRUGS (5)
  1. ALDACTONE [Suspect]
     Indication: HYPERTENSION
     Dosage: 25MG - ORAL
     Route: 048
     Dates: end: 20110221
  2. ENALAPRIL MALEATE [Suspect]
     Indication: HYPERTENSION
     Dosage: 20 MG -UNK- ORAL
     Route: 048
     Dates: end: 20110221
  3. METFORMIN HCL [Suspect]
     Indication: TYPE 2 DIABETES MELLITUS
     Dosage: 1 GRAM - DAILY - ORAL
     Route: 048
     Dates: end: 20110221
  4. LANTUS SQ [Concomitant]
  5. SECTRAL [Suspect]
     Indication: HYPERTENSION
     Dosage: 400 MG - UNK- ORAL
     Route: 048
     Dates: end: 20110221

REACTIONS (12)
  - HYPERKALAEMIA [None]
  - BRADYCARDIA [None]
  - SICK SINUS SYNDROME [None]
  - RENAL FAILURE [None]
  - HAEMODIALYSIS [None]
  - ATRIOVENTRICULAR BLOCK COMPLETE [None]
  - METABOLIC ACIDOSIS [None]
  - URINARY TRACT INFECTION ENTEROCOCCAL [None]
  - OEDEMA PERIPHERAL [None]
  - BUNDLE BRANCH BLOCK LEFT [None]
  - URINARY TRACT INFECTION PSEUDOMONAL [None]
  - ATRIAL FIBRILLATION [None]
